FAERS Safety Report 7125882-4 (Version None)
Quarter: 2010Q4

REPORT INFORMATION
  Report Type: 
  Country: None (occurrence: None)
  Receive Date: 20101129
  Receipt Date: 20101118
  Transmission Date: 20110411
  Serious: Yes (Other)
  Sender: FDA-Public Use
  Company Number: US-SANOFI-AVENTIS-2010SA070747

PATIENT
  Age: 69 Year
  Sex: Male

DRUGS (3)
  1. LANTUS [Suspect]
     Indication: DIABETES MELLITUS
     Dosage: DOSE:80 UNIT(S)
     Route: 058
  2. LANTUS [Suspect]
     Dosage: DOSE:35 UNIT(S)
     Route: 058
  3. NOVOLOG [Concomitant]
     Indication: DIABETES MELLITUS
     Dosage: DOSE:13 UNIT(S)
     Route: 065

REACTIONS (1)
  - CORONARY ARTERY BYPASS [None]
